FAERS Safety Report 17395502 (Version 1)
Quarter: 2020Q1

REPORT INFORMATION
  Report Type: Spontaneous
  Country: US (occurrence: US)
  Receive Date: 20200210
  Receipt Date: 20200210
  Transmission Date: 20200409
  Serious: No
  Sender: FDA-Public Use
  Company Number: US-ELI_LILLY_AND_COMPANY-US202002003409

PATIENT
  Age: 66 Year
  Sex: Female

DRUGS (7)
  1. HUMALOG MIX75/25 [Suspect]
     Active Substance: INSULIN LISPRO
     Dosage: 5 U, BID (IF ITS OVER 200 THEN ADD 2 UNITS EXTRA)
     Route: 058
     Dates: start: 20200203
  2. BENADRYL [Concomitant]
     Active Substance: DIPHENHYDRAMINE HYDROCHLORIDE
     Indication: EAR DISCOMFORT
  3. HUMALOG MIX75/25 [Suspect]
     Active Substance: INSULIN LISPRO
     Indication: TYPE 2 DIABETES MELLITUS
     Dosage: 3 U, EACH MORNING (IF ITS OVER 200 THEN ADD 2 UNITS EXTRA)
     Route: 058
     Dates: start: 20200203
  4. BENADRYL [Concomitant]
     Active Substance: DIPHENHYDRAMINE HYDROCHLORIDE
     Indication: ABDOMINAL PAIN UPPER
  5. BENADRYL [Concomitant]
     Active Substance: DIPHENHYDRAMINE HYDROCHLORIDE
     Indication: VISION BLURRED
  6. BENADRYL [Concomitant]
     Active Substance: DIPHENHYDRAMINE HYDROCHLORIDE
     Indication: EYE PAIN
  7. BENADRYL [Concomitant]
     Active Substance: DIPHENHYDRAMINE HYDROCHLORIDE
     Indication: HYPERSENSITIVITY

REACTIONS (12)
  - Eye pain [Recovering/Resolving]
  - Blood glucose decreased [Recovered/Resolved]
  - Varicose vein [Recovering/Resolving]
  - Headache [Not Recovered/Not Resolved]
  - Vision blurred [Recovering/Resolving]
  - Burning sensation [Recovering/Resolving]
  - Nausea [Recovered/Resolved]
  - Hypersensitivity [Recovering/Resolving]
  - Abdominal pain upper [Recovered/Resolved]
  - Ear discomfort [Recovered/Resolved]
  - Blood glucose increased [Recovering/Resolving]
  - Pruritus [Not Recovered/Not Resolved]

NARRATIVE: CASE EVENT DATE: 20200203
